FAERS Safety Report 10664930 (Version 1)
Quarter: 2014Q4

REPORT INFORMATION
  Report Type: Spontaneous
  Country: US (occurrence: US)
  Receive Date: 20141219
  Receipt Date: 20141219
  Transmission Date: 20150529
  Serious: No
  Sender: FDA-Public Use
  Company Number: US-ABBVIE-14P-163-1218517-00

PATIENT
  Age: 24 Year
  Sex: Male
  Weight: 118.95 kg

DRUGS (5)
  1. ADVICOR [Suspect]
     Active Substance: LOVASTATIN\NIACIN
     Indication: BLOOD TRIGLYCERIDES INCREASED
     Dosage: 500MG/20 MG
     Route: 048
     Dates: start: 20140130, end: 20140302
  2. METOPROLOL [Concomitant]
     Active Substance: METOPROLOL
     Indication: ANXIETY
  3. LISINOPRIL. [Concomitant]
     Active Substance: LISINOPRIL
     Indication: HYPERTENSION
  4. METFORMIN [Concomitant]
     Active Substance: METFORMIN HYDROCHLORIDE
     Indication: DIABETES MELLITUS
  5. ULORIC [Concomitant]
     Active Substance: FEBUXOSTAT
     Indication: GOUT

REACTIONS (2)
  - Blood triglycerides increased [Not Recovered/Not Resolved]
  - Drug ineffective [Not Recovered/Not Resolved]

NARRATIVE: CASE EVENT DATE: 201402
